FAERS Safety Report 4500463-7 (Version None)
Quarter: 2004Q4

REPORT INFORMATION
  Report Type: 
  Country: None (occurrence: None)
  Receive Date: 20040928
  Receipt Date: 20040804
  Transmission Date: 20050328
  Serious: No
  Sender: FDA-Public Use
  Company Number: 04P-163-0269195-00

PATIENT
  Age: 44 Year
  Sex: Female
  Weight: 81.6475 kg

DRUGS (6)
  1. HUMIRA [Suspect]
     Indication: RHEUMATOID ARTHRITIS
     Dosage: 40 MG, 1 IN 1 WK, SUBCUTANEOUS
     Route: 058
     Dates: start: 20040601, end: 20040101
  2. METHOTREXATE [Concomitant]
  3. PREDNISONE [Concomitant]
  4. LEVOTHYROXINE SODIUM [Concomitant]
  5. ESTRADIOL [Concomitant]
  6. ENALAPRIL [Concomitant]

REACTIONS (2)
  - DRUG INEFFECTIVE [None]
  - INJECTION SITE BURNING [None]
